FAERS Safety Report 4591071-0 (Version None)
Quarter: 2005Q1

REPORT INFORMATION
  Report Type: 
  Country: None (occurrence: None)
  Receive Date: 20050222
  Receipt Date: 20050222
  Transmission Date: 20050727
  Serious: Yes (Other)
  Sender: FDA-Public Use
  Company Number: None

PATIENT
  Age: 69 Year
  Sex: Female
  Weight: 45.8133 kg

DRUGS (1)
  1. PREDNISONE 5 MG [Suspect]
     Indication: ARTHRITIS
     Dosage: WAS 1 PILL, 3 TIMES A DAY, ORAL
     Route: 048
     Dates: start: 20010102, end: 20050221

REACTIONS (1)
  - DENTAL CARIES [None]
